FAERS Safety Report 4353050-8 (Version None)
Quarter: 2004Q2

REPORT INFORMATION
  Report Type: 
  Country: None (occurrence: None)
  Receive Date: 20040429
  Receipt Date: 20040416
  Transmission Date: 20050107
  Serious: Yes (Hospitalization)
  Sender: FDA-Public Use
  Company Number: 2004AP02282

PATIENT
  Age: 83 Year
  Sex: Male

DRUGS (6)
  1. IRESSA [Suspect]
     Indication: LUNG ADENOCARCINOMA
     Dosage: 250 MG DAILY PO
     Route: 048
     Dates: start: 20040329
  2. IRESSA [Suspect]
     Indication: NON-SMALL CELL LUNG CANCER
     Dosage: 250 MG DAILY PO
     Route: 048
     Dates: start: 20040329
  3. FLOMOX [Suspect]
     Indication: ABSCESS
     Dosage: 300 MG DAILY PO
     Route: 048
     Dates: start: 20040406, end: 20040411
  4. HALOPERIDOL [Suspect]
     Indication: DELIRIUM
     Dosage: 1.5 MG DAILY PO
     Route: 048
     Dates: start: 20040328, end: 20040415
  5. DUROTEP JANSSEN [Suspect]
     Indication: CANCER PAIN
     Dosage: 2.5 MG DAILY
     Dates: start: 20040330
  6. RADIATION THERAPY [Concomitant]

REACTIONS (5)
  - C-REACTIVE PROTEIN INCREASED [None]
  - CHEST X-RAY ABNORMAL [None]
  - EOSINOPHIL COUNT INCREASED [None]
  - LUNG INFILTRATION [None]
  - PRODUCTIVE COUGH [None]
